FAERS Safety Report 15288954 (Version 2)
Quarter: 2018Q3

REPORT INFORMATION
  Report Type: Spontaneous
  Country: US (occurrence: US)
  Receive Date: 20180817
  Receipt Date: 20180920
  Transmission Date: 20181010
  Serious: Yes (Other)
  Sender: FDA-Public Use
  Company Number: PHEH2018US033672

PATIENT
  Age: 60 Year
  Sex: Male
  Weight: 19.4 kg

DRUGS (1)
  1. GILENYA [Suspect]
     Active Substance: FINGOLIMOD HYDROCHLORIDE
     Indication: PRODUCT USED FOR UNKNOWN INDICATION
     Dosage: UNK
     Route: 065
     Dates: start: 201306, end: 20180725

REACTIONS (8)
  - Plasma cell myeloma [Unknown]
  - Neutrophilia [Unknown]
  - Bone lesion [Unknown]
  - Leukocytosis [Unknown]
  - Fall [Unknown]
  - Normocytic anaemia [Unknown]
  - Fracture [Unknown]
  - Rouleaux formation [Unknown]

NARRATIVE: CASE EVENT DATE: 20180723
